FAERS Safety Report 9334313 (Version 1)
Quarter: 2013Q2

REPORT INFORMATION
  Report Type: Spontaneous
  Country: US (occurrence: US)
  Receive Date: 20130606
  Receipt Date: 20130606
  Transmission Date: 20140414
  Serious: No
  Sender: FDA-Public Use
  Company Number: US-AMGEN-USASP2013022132

PATIENT
  Age: 75 Year
  Sex: Female
  Weight: 52.2 kg

DRUGS (6)
  1. PROLIA [Suspect]
     Indication: OSTEOPOROSIS POSTMENOPAUSAL
     Dosage: 60 MG, Q6MO
     Route: 058
     Dates: start: 20110929, end: 20121109
  2. IBUPROFEN [Concomitant]
     Indication: ARTHRITIS
  3. CALCIUM WITH VITAMIN D             /00944201/ [Concomitant]
  4. CELEBREX [Concomitant]
     Dosage: 100 MG, QD
     Route: 048
  5. CYCLOBENZAPRINE [Concomitant]
     Dosage: 5 MG, QD
     Route: 048
  6. RANITIDINE [Concomitant]
     Dosage: 120 MG, Q12H
     Route: 048

REACTIONS (5)
  - Rash erythematous [Recovering/Resolving]
  - Rash pruritic [Recovering/Resolving]
  - Seborrhoeic keratosis [Unknown]
  - Hypersensitivity [Unknown]
  - Blood pressure abnormal [Unknown]
